FAERS Safety Report 9948352 (Version 1)
Quarter: 2014Q1

REPORT INFORMATION
  Report Type: Report from Study
  Country: US (occurrence: US)
  Receive Date: 20140303
  Receipt Date: 20140303
  Transmission Date: 20141002
  Serious: No
  Sender: FDA-Public Use
  Company Number: US-ABBVIE-13P-163-1061301-00

PATIENT
  Age: 54 Year
  Sex: Female

DRUGS (6)
  1. HUMIRA [Suspect]
     Indication: PSORIASIS
     Route: 058
     Dates: start: 201212, end: 201212
  2. HUMIRA [Suspect]
     Route: 058
  3. LEVOTHYROXINE [Concomitant]
     Indication: HYPOTHYROIDISM
  4. AMLODIPINE AND BENAZEPRIL [Concomitant]
     Indication: HYPERTENSION
  5. HCTZ [Concomitant]
     Indication: HYPERTENSION
  6. LOBETALOL [Concomitant]
     Indication: HYPERTENSION

REACTIONS (2)
  - Injection site reaction [Not Recovered/Not Resolved]
  - Injection site pain [Not Recovered/Not Resolved]
